FAERS Safety Report 8461978-2 (Version None)
Quarter: 2012Q2

REPORT INFORMATION
  Report Type: 
  Country: None (occurrence: None)
  Receive Date: 20120625
  Receipt Date: 20120608
  Transmission Date: 20120825
  Serious: No
  Sender: FDA-Public Use
  Company Number: US-JNJFOC-20120606433

PATIENT
  Age: 20 Year
  Sex: Male

DRUGS (4)
  1. INVEGA [Suspect]
     Indication: PRODUCT USED FOR UNKNOWN INDICATION
     Route: 048
     Dates: start: 20120401, end: 20120101
  2. UNKNOWN MEDICATION [Concomitant]
     Route: 065
  3. VYVANSE [Concomitant]
     Route: 065
  4. ADDERALL 5 [Concomitant]
     Route: 065

REACTIONS (1)
  - AGITATION [None]
